FAERS Safety Report 9515149 (Version 1)
Quarter: 2013Q1

REPORT INFORMATION
  Report Type: Spontaneous
  Country: US (occurrence: None)
  Receive Date: 20130305
  Receipt Date: 20130305
  Transmission Date: 20140127
  Serious: Yes (Other)
  Sender: FDA-Public Use
  Company Number: 163-21880-12122834

PATIENT
  Age: 78 Year
  Sex: Male
  Weight: 85.3 kg

DRUGS (3)
  1. REVLIMID [Suspect]
     Indication: MYELODYSPLASTIC SYNDROME
     Dosage: 10MG, 1 IN 2 D
     Route: 048
     Dates: start: 20121023
  2. COZAAR (LOSARTAN POTASSIUM) (50 MILLIGRAM, TABLETS) (LOSARTAN POTASSIUM) [Concomitant]
  3. METOPROLOL TARTATE (METOPROLOL TARTRATE) [Concomitant]

REACTIONS (1)
  - Rash generalised [None]
